FAERS Safety Report 4986852-5 (Version None)
Quarter: 2006Q2

REPORT INFORMATION
  Report Type: 
  Country: None (occurrence: None)
  Receive Date: 20060428
  Receipt Date: 20060210
  Transmission Date: 20061013
  Serious: Yes (Death, Life-Threatening, Hospitalization, Other)
  Sender: FDA-Public Use
  Company Number: ES-ABBOTT-06P-144-0324618-00

PATIENT
  Age: 81 Year
  Sex: Female

DRUGS (7)
  1. HUMIRA [Suspect]
     Indication: RHEUMATOID ARTHRITIS
     Route: 058
     Dates: start: 20041001, end: 20060121
  2. METHOTREXATE [Concomitant]
     Indication: RHEUMATOID ARTHRITIS
     Route: 048
     Dates: start: 20041001, end: 20060121
  3. PREDNISONE [Concomitant]
     Indication: RHEUMATOID ARTHRITIS
     Route: 048
  4. ACENOCOUMAROL [Concomitant]
     Indication: ATRIAL FIBRILLATION
     Route: 048
  5. DIGOXIN [Concomitant]
     Indication: ATRIAL FIBRILLATION
     Route: 048
  6. RISEDRONATO [Concomitant]
     Indication: OSTEOPOROSIS
     Route: 048
  7. CALCIO-VITD [Concomitant]
     Indication: OSTEOPOROSIS
     Route: 048

REACTIONS (5)
  - ATRIAL FIBRILLATION [None]
  - CARDIAC FAILURE [None]
  - PNEUMONIA [None]
  - RENAL FAILURE [None]
  - STAPHYLOCOCCAL SEPSIS [None]
